FAERS Safety Report 14161785 (Version 1)
Quarter: 2017Q4

REPORT INFORMATION
  Report Type: Spontaneous
  Country: ES (occurrence: ES)
  Receive Date: 20171106
  Receipt Date: 20171106
  Transmission Date: 20180321
  Serious: Yes (Life-Threatening, Hospitalization, Other)
  Sender: FDA-Public Use
  Company Number: ES-PFIZER INC-2017476347

PATIENT
  Age: 51 Year
  Sex: Female
  Weight: 57 kg

DRUGS (3)
  1. RESOCHIN [Suspect]
     Active Substance: NIFEDIPINE
     Indication: SYSTEMIC LUPUS ERYTHEMATOSUS
     Dosage: 250 MG, 1X/DAY
     Route: 048
     Dates: start: 200910, end: 20160928
  2. RESOCHIN [Suspect]
     Active Substance: NIFEDIPINE
     Dosage: 250 MG, 5X/WEEK
     Route: 048
     Dates: start: 20160929, end: 20170306
  3. LYRICA [Suspect]
     Active Substance: PREGABALIN
     Indication: BACK PAIN
     Dosage: 75 MG, 1X/DAY
     Route: 048
     Dates: start: 2009

REACTIONS (4)
  - Lung adenocarcinoma [Unknown]
  - Blood pressure increased [Unknown]
  - Atrioventricular block second degree [Recovered/Resolved]
  - Coronary artery disease [Unknown]

NARRATIVE: CASE EVENT DATE: 201703
